FAERS Safety Report 16778972 (Version 7)
Quarter: 2019Q4

REPORT INFORMATION
  Report Type: Spontaneous
  Country: JP (occurrence: JP)
  Receive Date: 20190906
  Receipt Date: 20191211
  Transmission Date: 20200122
  Serious: Yes (Hospitalization, Other)
  Sender: FDA-Public Use
  Company Number: JP-SA-2019SA246470

PATIENT
  Age: 71 Year
  Sex: Male
  Weight: 58 kg

DRUGS (4)
  1. SYMBICORT [Concomitant]
     Active Substance: BUDESONIDE\FORMOTEROL FUMARATE DIHYDRATE
     Indication: ASTHMA
     Dosage: 8 INHALATIONS PER DAY
     Route: 055
  2. DUPIXENT [Suspect]
     Active Substance: DUPILUMAB
     Indication: ASTHMA
     Dosage: UNK
     Route: 058
     Dates: start: 201907, end: 20190818
  3. PREDONINE [Concomitant]
     Active Substance: PREDNISOLONE
     Indication: ASTHMA
     Dosage: DAILY DOSE: 30 MG
     Route: 065
  4. PREDONINE [Concomitant]
     Active Substance: PREDNISOLONE
     Dosage: DAILY DOSE: 10 MG
     Route: 065

REACTIONS (5)
  - Pustule [Unknown]
  - Dermatitis exfoliative generalised [Recovering/Resolving]
  - Erythema [Recovering/Resolving]
  - Cerebral infarction [Recovered/Resolved]
  - Psoriasis [Recovering/Resolving]

NARRATIVE: CASE EVENT DATE: 201908
